FAERS Safety Report 12738473 (Version 1)
Quarter: 2016Q3

REPORT INFORMATION
  Report Type: Spontaneous
  Country: US (occurrence: US)
  Receive Date: 20160912
  Receipt Date: 20160912
  Transmission Date: 20161109
  Serious: No
  Sender: FDA-Public Use
  Company Number: US-SA-2016SA136525

PATIENT
  Age: 75 Year
  Sex: Male
  Weight: 104.32 kg

DRUGS (4)
  1. SOLOSTAR [Concomitant]
     Active Substance: DEVICE
     Indication: TYPE 2 DIABETES MELLITUS
     Dates: start: 201602, end: 20160803
  2. TOUJEO [Suspect]
     Active Substance: INSULIN GLARGINE
     Indication: TYPE 2 DIABETES MELLITUS
     Dosage: DOSE:60 UNIT(S)
     Route: 065
     Dates: start: 201602, end: 20160803
  3. NOVOLOG [Concomitant]
     Active Substance: INSULIN ASPART
     Dosage: DOSE: 5 TO 15 IU AT MEALS
  4. LEVEMIR [Concomitant]
     Active Substance: INSULIN DETEMIR
     Dosage: IF HE DOESN^T HAVE TOUJEO; DOESN^T WORK FOR THE PATIENT.

REACTIONS (2)
  - Therapeutic response decreased [Unknown]
  - Blood glucose abnormal [Unknown]
